FAERS Safety Report 12824194 (Version 2)
Quarter: 2016Q4

REPORT INFORMATION
  Report Type: Spontaneous
  Country: JP (occurrence: JP)
  Receive Date: 20161007
  Receipt Date: 20161220
  Transmission Date: 20170207
  Serious: Yes (Hospitalization)
  Sender: FDA-Public Use
  Company Number: JP-ELI_LILLY_AND_COMPANY-JP201609005354

PATIENT
  Age: 67 Year
  Sex: Female
  Weight: 38 kg

DRUGS (10)
  1. CYMBALTA [Suspect]
     Active Substance: DULOXETINE HYDROCHLORIDE
     Dosage: 40 MG, QD
     Route: 048
     Dates: start: 20160801, end: 20160910
  2. CYMBALTA [Suspect]
     Active Substance: DULOXETINE HYDROCHLORIDE
     Dosage: 20 MG, QD
     Route: 048
     Dates: start: 20160911, end: 20160912
  3. DIBCALSOR [Concomitant]
     Active Substance: CALCIUM BROMIDE\DIBUCAINE HYDROCHLORIDE\SODIUM SALICYLATE
     Indication: BACK PAIN
     Dosage: UNK
     Dates: start: 20160711
  4. CYMBALTA [Suspect]
     Active Substance: DULOXETINE HYDROCHLORIDE
     Indication: BACK PAIN
     Dosage: 20 MG, QD
     Route: 048
     Dates: start: 20160722, end: 20160731
  5. LOBU [Concomitant]
     Active Substance: LOBUCAVIR
     Indication: BACK PAIN
     Dosage: 60 MG, PRN
     Route: 048
     Dates: start: 20160709
  6. ELCITONIN [Concomitant]
     Active Substance: ELCATONIN
     Indication: OSTEOPOROSIS
     Dosage: 20 IU, WEEKLY (1/W)
     Route: 030
     Dates: start: 20160709
  7. LOXOPROFEN SODIUM [Concomitant]
     Active Substance: LOXOPROFEN SODIUM
     Indication: BACK PAIN
     Dosage: UNK
     Route: 062
     Dates: start: 20160713
  8. REBAMIPIDE [Concomitant]
     Active Substance: REBAMIPIDE
     Indication: ABDOMINAL DISCOMFORT
     Dosage: 100 MG, PRN
     Route: 048
     Dates: start: 20160709
  9. ADEFURONIC [Concomitant]
     Active Substance: DICLOFENAC SODIUM
     Indication: BACK PAIN
     Dosage: UNK, PRN
     Route: 054
     Dates: start: 20160709
  10. NEUROTROPIN                        /06251301/ [Concomitant]
     Active Substance: ORYCTOLAGUS CUNICULUS SKIN
     Indication: BACK PAIN
     Dosage: UNK
     Route: 042
     Dates: start: 20160709

REACTIONS (1)
  - Neutrophilic dermatosis [Recovering/Resolving]

NARRATIVE: CASE EVENT DATE: 20160906
